FAERS Safety Report 25423236 (Version 1)
Quarter: 2025Q2

REPORT INFORMATION
  Report Type: Spontaneous
  Country: US (occurrence: US)
  Receive Date: 20250611
  Receipt Date: 20250611
  Transmission Date: 20250716
  Serious: No
  Sender: PIERRE FABRE MEDICAMENT
  Company Number: US-PFM-2024-06450

PATIENT
  Sex: Male
  Weight: 6.689 kg

DRUGS (3)
  1. HEMANGEOL [Suspect]
     Active Substance: PROPRANOLOL HYDROCHLORIDE
     Indication: PHACES syndrome
     Dosage: 0.5 ML, BID (2/DAY) X 1 WEEK
  2. HEMANGEOL [Suspect]
     Active Substance: PROPRANOLOL HYDROCHLORIDE
     Dosage: 1 ML, BID (2/DAY) X 1 WEEK
  3. HEMANGEOL [Suspect]
     Active Substance: PROPRANOLOL HYDROCHLORIDE
     Dosage: 1.3 ML, BID (2/DAY)

REACTIONS (2)
  - Product use in unapproved indication [Unknown]
  - Off label use [Unknown]
